FAERS Safety Report 9083011 (Version 1)
Quarter: 2013Q1

REPORT INFORMATION
  Report Type: Report from Study
  Country: US (occurrence: US)
  Receive Date: 20130131
  Receipt Date: 20130131
  Transmission Date: 20140127
  Serious: No
  Sender: FDA-Public Use
  Company Number: US-ABBOTT-12P-163-0994255-00

PATIENT
  Age: 37 Year
  Sex: Female

DRUGS (6)
  1. HUMIRA [Suspect]
     Indication: CROHN^S DISEASE
     Dosage: LOADING DOSE
     Dates: start: 20120924, end: 20120924
  2. HUMIRA [Suspect]
     Dosage: LOADING DOSE
     Dates: start: 20121009, end: 20121009
  3. HUMIRA [Suspect]
     Dates: start: 20121009
  4. VICODIN [Suspect]
  5. PENTASA [Concomitant]
     Indication: CROHN^S DISEASE
  6. UNKNOWN MEDICATION [Concomitant]
     Indication: HYPERSENSITIVITY

REACTIONS (3)
  - Injection site pain [Recovering/Resolving]
  - Injection site pain [Recovering/Resolving]
  - Drug ineffective [Unknown]
